FAERS Safety Report 5703148-4 (Version None)
Quarter: 2008Q2

REPORT INFORMATION
  Report Type: 
  Country: None (occurrence: None)
  Receive Date: 20080411
  Receipt Date: 20080331
  Transmission Date: 20081010
  Serious: Yes (Other)
  Sender: FDA-Public Use
  Company Number: US-PFIZER INC-2007107047

PATIENT
  Sex: Female
  Weight: 72.727 kg

DRUGS (6)
  1. CHANTIX [Suspect]
     Indication: SMOKING CESSATION THERAPY
     Dates: start: 20071201, end: 20071212
  2. HERBAL PREPARATION [Suspect]
     Indication: CONSTIPATION
  3. AMBIEN [Concomitant]
  4. LITHIUM CARBONATE [Concomitant]
  5. MOBIC [Concomitant]
  6. VALIUM [Concomitant]

REACTIONS (6)
  - CONSTIPATION [None]
  - DIARRHOEA [None]
  - IMPAIRED SELF-CARE [None]
  - INSOMNIA [None]
  - NAUSEA [None]
  - VOMITING [None]
